FAERS Safety Report 16563657 (Version 1)
Quarter: 2019Q3

REPORT INFORMATION
  Report Type: Spontaneous
  Country: CN (occurrence: CN)
  Receive Date: 20190712
  Receipt Date: 20190712
  Transmission Date: 20191004
  Serious: Yes (Hospitalization)
  Sender: FDA-Public Use
  Company Number: CN-DRREDDYS-GPV/CHN/19/0111556

PATIENT
  Age: 62 Year
  Sex: Female
  Weight: 43 kg

DRUGS (2)
  1. OLANZ (OLANZAPINE) [Suspect]
     Active Substance: OLANZAPINE
     Indication: SCHIZOPHRENIA
     Route: 048
     Dates: start: 20190503, end: 20190530
  2. OLANZ (OLANZAPINE) [Suspect]
     Active Substance: OLANZAPINE
     Route: 048
     Dates: start: 20190530

REACTIONS (2)
  - Anxiety [Recovering/Resolving]
  - Akathisia [Recovering/Resolving]

NARRATIVE: CASE EVENT DATE: 20190530
